FAERS Safety Report 7241604 (Version 2)
Quarter: 2014Q3

REPORT INFORMATION
  Report Type: Spontaneous
  Country: US (occurrence: US)
  Receive Date: 20100111
  Receipt Date: 20140706
  Transmission Date: 20150326
  Serious: Yes (Disabling, Other)
  Sender: FDA-Public Use
  Company Number: US-ELI_LILLY_AND_COMPANY-US201001000322

PATIENT
  Age: 74 Year
  Sex: Male

DRUGS (16)
  1. SYNTHROID [Concomitant]
     Active Substance: LEVOTHYROXINE SODIUM
     Dosage: .224 UG, QD
  2. LANSOPRAZOLE. [Concomitant]
     Active Substance: LANSOPRAZOLE
     Dosage: 30 MG, QD
  3. TYLENOL                                 /SCH/ [Concomitant]
     Dosage: 1000 MG, QD
  4. HUMALOG [Suspect]
     Active Substance: INSULIN LISPRO
     Dosage: UNK UNK, PRN
     Route: 058
  5. EX-LAX [Concomitant]
     Dosage: UNK, QD
  6. ZOLOFT [Concomitant]
     Active Substance: SERTRALINE HYDROCHLORIDE
     Dosage: 100 MG, UNK
  7. TOPROL XL [Concomitant]
     Active Substance: METOPROLOL SUCCINATE
     Dosage: 12.5 MG, QD
  8. VITAMIN D [Concomitant]
     Active Substance: CHOLECALCIFEROL
     Dosage: 200 IU, QD
  9. HUMALOG [Suspect]
     Active Substance: INSULIN LISPRO
     Indication: TYPE 2 DIABETES MELLITUS
     Dosage: 15 U, 4/D
     Route: 058
     Dates: start: 2003
  10. ASPIRIN. [Concomitant]
     Active Substance: ASPIRIN
     Dosage: 81 MG, QD
  11. ATORVASTATIN [Concomitant]
     Active Substance: ATORVASTATIN
     Dosage: 40 MG, QD
  12. BENZONATATE. [Concomitant]
     Active Substance: BENZONATATE
     Dosage: 100 MG, QD
  13. LANTUS [Concomitant]
     Active Substance: INSULIN GLARGINE
     Dosage: 100 U, EACH MORNING
  14. PLAVIX [Concomitant]
     Active Substance: CLOPIDOGREL BISULFATE
     Dosage: 75 MG, UNKNOWN
  15. TORSEMIDE. [Concomitant]
     Active Substance: TORSEMIDE
     Dosage: 20 MG, QD
  16. GABAPENTIN. [Concomitant]
     Active Substance: GABAPENTIN
     Dosage: 100 MG, QD

REACTIONS (6)
  - Blood glucose increased [Recovered/Resolved]
  - Memory impairment [Not Recovered/Not Resolved]
  - Underdose [Recovered/Resolved]
  - Device misuse [Unknown]
  - Cardiac failure congestive [Unknown]
  - Blindness [Not Recovered/Not Resolved]

NARRATIVE: CASE EVENT DATE: 2007
